FAERS Safety Report 6074412-7 (Version None)
Quarter: 2009Q1

REPORT INFORMATION
  Report Type: 
  Country: None (occurrence: None)
  Receive Date: 20090206
  Receipt Date: 20090122
  Transmission Date: 20090719
  Serious: Yes (Life-Threatening, Hospitalization)
  Sender: FDA-Public Use
  Company Number: 8042133

PATIENT
  Age: 18 Year
  Sex: Male

DRUGS (5)
  1. KEPPRA [Suspect]
     Indication: BRAIN NEOPLASM MALIGNANT
     Dosage: 1000 MG/D PO
     Route: 048
     Dates: end: 20081030
  2. BACTRIM [Suspect]
     Dosage: 1 DF 2/D PO
     Route: 048
     Dates: start: 20081021, end: 20081026
  3. NOVALGIN [Suspect]
     Indication: PAIN
     Dosage: 500 MG PRN PO
     Route: 048
  4. DURAGESIC-100 [Concomitant]
  5. NOPIL [Concomitant]

REACTIONS (2)
  - GENERAL PHYSICAL HEALTH DETERIORATION [None]
  - PANCYTOPENIA [None]
